FAERS Safety Report 15473271 (Version 3)
Quarter: 2018Q4

REPORT INFORMATION
  Report Type: Spontaneous
  Country: BR (occurrence: BR)
  Receive Date: 20181008
  Receipt Date: 20181108
  Transmission Date: 20190205
  Serious: Yes (Other)
  Sender: FDA-Public Use
  Company Number: BR-PFIZER INC-2018403620

PATIENT
  Age: 36 Year
  Sex: Female

DRUGS (2)
  1. RIVOTRIL [Concomitant]
     Active Substance: CLONAZEPAM
     Dosage: UNK
  2. LORAX [Suspect]
     Active Substance: LORAZEPAM
     Indication: DEPRESSION
     Dosage: 2 MG, 2X/DAY

REACTIONS (7)
  - Circulatory collapse [Unknown]
  - Amnesia [Unknown]
  - Drug dependence [Not Recovered/Not Resolved]
  - Chills [Unknown]
  - Insomnia [Unknown]
  - Nervousness [Unknown]
  - Syncope [Unknown]

NARRATIVE: CASE EVENT DATE: 1976
